FAERS Safety Report 14019518 (Version 3)
Quarter: 2024Q4

REPORT INFORMATION
  Report Type: Spontaneous
  Country: PL (occurrence: PL)
  Receive Date: 20170928
  Receipt Date: 20241115
  Transmission Date: 20250115
  Serious: Yes (Other)
  Sender: AUROBINDO
  Company Number: PL-AUROBINDO-AUR-APL-2017-39721

PATIENT
  Age: 22 Year
  Sex: Female

DRUGS (6)
  1. RIBAVIRIN [Suspect]
     Active Substance: RIBAVIRIN
     Indication: Antiviral treatment
     Dosage: UNK
     Route: 065
     Dates: start: 2012
  2. MYCOPHENOLATE MOFETIL [Suspect]
     Active Substance: MYCOPHENOLATE MOFETIL
     Indication: Immunosuppressant drug therapy
     Dosage: UNK
     Route: 065
     Dates: start: 201207
  3. PEGINTERFERON ALFA-2A [Suspect]
     Active Substance: PEGINTERFERON ALFA-2A
     Indication: Antiviral treatment
     Dosage: UNK
     Route: 065
     Dates: start: 2012
  4. TELAPREVIR [Suspect]
     Active Substance: TELAPREVIR
     Indication: Antiviral treatment
     Dosage: UNK
     Route: 065
     Dates: start: 201210
  5. PREDNISONE [Suspect]
     Active Substance: PREDNISONE
     Indication: Immunosuppressant drug therapy
     Dosage: UNK
     Route: 065
     Dates: start: 201207
  6. TACROLIMUS [Concomitant]
     Active Substance: TACROLIMUS
     Indication: Immunosuppressant drug therapy
     Dosage: UNK
     Route: 065
     Dates: start: 201207

REACTIONS (4)
  - Anal pruritus [Unknown]
  - Blood disorder [Recovered/Resolved]
  - Pancytopenia [Recovering/Resolving]
  - Hypogammaglobulinaemia [Unknown]

NARRATIVE: CASE EVENT DATE: 20120101
